FAERS Safety Report 6395138-6 (Version None)
Quarter: 2009Q4

REPORT INFORMATION
  Report Type: 
  Country: None (occurrence: None)
  Receive Date: 20091009
  Receipt Date: 20091001
  Transmission Date: 20100525
  Serious: Yes (Hospitalization)
  Sender: FDA-Public Use
  Company Number: US-ROCHE-511164

PATIENT
  Sex: Female
  Weight: 50.3 kg

DRUGS (4)
  1. BONIVA [Suspect]
     Indication: OSTEOPOROSIS
     Route: 048
     Dates: start: 20070720, end: 20070720
  2. PREDNISONE [Concomitant]
  3. CALCIUM [Concomitant]
  4. VITAMINE D [Concomitant]
     Dosage: DRUG REPORTED AS VITAMIN D.

REACTIONS (7)
  - ASTHENIA [None]
  - BLOOD PRESSURE INCREASED [None]
  - BONE PAIN [None]
  - HEART RATE INCREASED [None]
  - HEART RATE IRREGULAR [None]
  - MYALGIA [None]
  - NAUSEA [None]
